FAERS Safety Report 9760884 (Version 3)
Quarter: 2014Q3

REPORT INFORMATION
  Report Type: Spontaneous
  Country: US (occurrence: US)
  Receive Date: 20131216
  Receipt Date: 20140824
  Transmission Date: 20150326
  Serious: No
  Sender: FDA-Public Use
  Company Number: US-009507513-1312USA004572

PATIENT
  Sex: Female

DRUGS (1)
  1. NUVARING [Suspect]
     Active Substance: ETHINYL ESTRADIOL\ETONOGESTREL
     Indication: PRODUCT USED FOR UNKNOWN INDICATION
     Dosage: UNK
     Route: 067
     Dates: start: 20040923, end: 20060929

REACTIONS (6)
  - Thrombosis [Unknown]
  - Arterial occlusive disease [Unknown]
  - Intermittent claudication [Unknown]
  - Migraine with aura [Unknown]
  - Peripheral arterial occlusive disease [Unknown]
  - Arterial insufficiency [Unknown]

NARRATIVE: CASE EVENT DATE: 20060929
